FAERS Safety Report 8068772-5 (Version None)
Quarter: 2012Q1

REPORT INFORMATION
  Report Type: 
  Country: None (occurrence: None)
  Receive Date: 20120124
  Receipt Date: 20120105
  Transmission Date: 20120608
  Serious: No
  Sender: FDA-Public Use
  Company Number: US-AMGEN-USASP2011050408

PATIENT
  Age: 66 Year
  Sex: Female

DRUGS (15)
  1. EXTRA STRENGTH TYLENOL [Concomitant]
     Dosage: UNK
  2. CATAPRES [Concomitant]
     Dosage: UNK
  3. IMDUR [Concomitant]
     Dosage: UNK
  4. XANAX [Concomitant]
     Dosage: UNK
  5. AMBIEN [Concomitant]
     Dosage: UNK
  6. PROLIA [Suspect]
     Indication: OSTEOPOROSIS POSTMENOPAUSAL
     Dosage: 60 MG, Q6MO
     Route: 058
     Dates: start: 20110830
  7. LANTUS [Concomitant]
     Dosage: UNK
  8. WELLBUTRIN [Concomitant]
     Dosage: UNK
  9. ADALAT CC [Concomitant]
     Dosage: UNK
  10. ULORIC [Concomitant]
     Dosage: UNK
  11. LASIX [Concomitant]
     Dosage: UNK
  12. LOPRESSOR [Concomitant]
     Dosage: UNK
  13. ZOCOR [Concomitant]
     Dosage: UNK
  14. VASOTEC [Concomitant]
     Dosage: UNK
  15. APRESOLINE [Concomitant]
     Dosage: UNK

REACTIONS (6)
  - FEELING ABNORMAL [None]
  - ARTHRALGIA [None]
  - GOUT [None]
  - MYALGIA [None]
  - PAIN [None]
  - INSOMNIA [None]
